FAERS Safety Report 9119339 (Version 1)
Quarter: 2013Q1

REPORT INFORMATION
  Report Type: Spontaneous
  Country: US (occurrence: None)
  Receive Date: 20130221
  Receipt Date: 20130221
  Transmission Date: 20140127
  Serious: Yes (Other)
  Sender: FDA-Public Use
  Company Number: None

PATIENT
  Age: 85 Year
  Sex: Male
  Weight: 72.58 kg

DRUGS (1)
  1. AVODART [Suspect]
     Indication: NOCTURIA
     Route: 048
     Dates: start: 20121210, end: 20130211

REACTIONS (6)
  - Depression [None]
  - Nausea [None]
  - Dizziness [None]
  - Feeling abnormal [None]
  - Feeling abnormal [None]
  - Heart rate increased [None]
